FAERS Safety Report 7198078-8 (Version None)
Quarter: 2010Q4

REPORT INFORMATION
  Report Type: 
  Country: None (occurrence: None)
  Receive Date: 20101227
  Receipt Date: 20101215
  Transmission Date: 20110411
  Serious: Yes (Other)
  Sender: FDA-Public Use
  Company Number: JP-JNJFOC-20090206581

PATIENT
  Sex: Female

DRUGS (3)
  1. ITRIZOLE [Suspect]
     Indication: ONYCHOMYCOSIS
     Route: 048
  2. ITRIZOLE [Suspect]
     Dosage: PULSE THERAPY
     Route: 048
  3. NIZORAL [Concomitant]
     Indication: ONYCHOMYCOSIS
     Route: 061

REACTIONS (2)
  - CHOKING SENSATION [None]
  - PHARYNGEAL OEDEMA [None]
